FAERS Safety Report 16806517 (Version 1)
Quarter: 2019Q3

REPORT INFORMATION
  Report Type: Spontaneous
  Country: US (occurrence: US)
  Receive Date: 20190913
  Receipt Date: 20190913
  Transmission Date: 20191005
  Serious: No
  Sender: FDA-Public Use
  Company Number: US-ASTRAZENECA-2019SF18839

PATIENT
  Age: 74 Year
  Sex: Male
  Weight: 90.7 kg

DRUGS (1)
  1. BYDUREON [Suspect]
     Active Substance: EXENATIDE
     Indication: TYPE 2 DIABETES MELLITUS
     Route: 058
     Dates: start: 2009

REACTIONS (4)
  - Product dose omission [Unknown]
  - Incorrect dose administered [Unknown]
  - Injection site pain [Unknown]
  - Device malfunction [Unknown]

NARRATIVE: CASE EVENT DATE: 2009
